FAERS Safety Report 22078288 (Version 1)
Quarter: 2023Q1

REPORT INFORMATION
  Report Type: Spontaneous
  Country: US (occurrence: US)
  Receive Date: 20230309
  Receipt Date: 20230309
  Transmission Date: 20230418
  Serious: No
  Sender: FDA-Public Use
  Company Number: US-MYLANLABS-2023M1023108

PATIENT
  Sex: Male
  Weight: 83.01 kg

DRUGS (1)
  1. WIXELA INHUB [Suspect]
     Active Substance: FLUTICASONE PROPIONATE\SALMETEROL XINAFOATE
     Indication: Chronic obstructive pulmonary disease
     Dosage: 250/50 MCG, BID (ONCE IN THE MORNING AND ONCE IN THE EVENING)
     Route: 055

REACTIONS (3)
  - Lung disorder [Unknown]
  - Expired product administered [Unknown]
  - Device mechanical issue [Unknown]
